FAERS Safety Report 16039483 (Version 2)
Quarter: 2020Q2

REPORT INFORMATION
  Report Type: Report from Study
  Country: US (occurrence: US)
  Receive Date: 20190306
  Receipt Date: 20200625
  Transmission Date: 20200713
  Serious: No
  Sender: FDA-Public Use
  Company Number: GXBR2015US001292

PATIENT
  Age: 17 Year
  Sex: Male
  Weight: 72.85 kg

DRUGS (4)
  1. NEXIUM [Concomitant]
     Active Substance: ESOMEPRAZOLE MAGNESIUM
     Indication: GASTROOESOPHAGEAL REFLUX DISEASE
     Dosage: UNK
     Route: 048
  2. ARIMIDEX [Concomitant]
     Active Substance: ANASTROZOLE
     Indication: PROPHYLAXIS
     Dosage: UNK
     Route: 048
     Dates: start: 20140130
  3. OMNITROPE [Suspect]
     Active Substance: SOMATROPIN
     Dosage: 0.097 MG, UNK
     Route: 058
     Dates: start: 20131102, end: 201504
  4. OMNITROPE [Suspect]
     Active Substance: SOMATROPIN
     Indication: GROWTH HORMONE DEFICIENCY
     Dosage: 7.0 MG, QD
     Route: 058
     Dates: start: 20131102, end: 20150420

REACTIONS (1)
  - Swelling face [Recovered/Resolved]

NARRATIVE: CASE EVENT DATE: 20150420
